FAERS Safety Report 7920805-X (Version None)
Quarter: 2011Q4

REPORT INFORMATION
  Report Type: 
  Country: None (occurrence: None)
  Receive Date: 20111117
  Receipt Date: 20111107
  Transmission Date: 20120403
  Serious: Yes (Death)
  Sender: FDA-Public Use
  Company Number: US-MILLENNIUM PHARMACEUTICALS, INC.-2011-05545

PATIENT

DRUGS (3)
  1. DEXAMETHASONE [Suspect]
     Indication: AMYLOIDOSIS
     Dosage: UNK
  2. VELCADE [Suspect]
     Indication: AMYLOIDOSIS
     Dosage: UNK
  3. CYCLOPHOSPHAMIDE [Suspect]
     Indication: AMYLOIDOSIS
     Dosage: UNK

REACTIONS (1)
  - DEATH [None]
